FAERS Safety Report 5943001-4 (Version None)
Quarter: 2008Q4

REPORT INFORMATION
  Report Type: 
  Country: None (occurrence: None)
  Receive Date: 20081106
  Receipt Date: 20081031
  Transmission Date: 20090506
  Serious: Yes (Other)
  Sender: FDA-Public Use
  Company Number: US-BAYER-200813820BCC

PATIENT
  Age: 68 Year
  Sex: Female
  Weight: 52 kg

DRUGS (8)
  1. PHILLIPS MILK OF MAGNESIA CHERRY [Suspect]
     Indication: CONSTIPATION
     Dosage: TOTAL DAILY DOSE: 60 ML
     Route: 048
     Dates: start: 20080916
  2. PHILLIPS MILK OF MAGNESIA CHERRY [Suspect]
     Route: 048
     Dates: start: 20080801
  3. NOVOLOG [Concomitant]
     Dates: start: 20080101
  4. ESTROPIPATE [Concomitant]
  5. ASCORBIC ACID [Concomitant]
  6. EXCEDRIN [Concomitant]
  7. LIPITOR [Concomitant]
  8. MIRALAX [Concomitant]

REACTIONS (1)
  - BLOOD GLUCOSE INCREASED [None]
